FAERS Safety Report 16122968 (Version 2)
Quarter: 2019Q2

REPORT INFORMATION
  Report Type: Spontaneous
  Country: NL (occurrence: NL)
  Receive Date: 20190327
  Receipt Date: 20190403
  Transmission Date: 20190711
  Serious: Yes (Hospitalization)
  Sender: FDA-Public Use
  Company Number: NL-ASTRAZENECA-2019SE45577

PATIENT
  Sex: Female
  Weight: 62 kg

DRUGS (13)
  1. MIRABEGRON [Concomitant]
     Active Substance: MIRABEGRON
  2. DESLORATADINE. [Concomitant]
     Active Substance: DESLORATADINE
  3. THEOPHYLLINE [Concomitant]
     Active Substance: THEOPHYLLINE ANHYDROUS
  4. FASENRA [Suspect]
     Active Substance: BENRALIZUMAB
     Indication: ASTHMA
     Dosage: 30.0MG UNKNOWN
     Route: 058
     Dates: start: 20181206, end: 20190312
  5. BETAHISTINE [Concomitant]
     Active Substance: BETAHISTINE
  6. PANTOPRAZOL [Concomitant]
     Active Substance: PANTOPRAZOLE SODIUM
  7. FENTANYL. [Concomitant]
     Active Substance: FENTANYL
     Dosage: 2UG. 1DF DAILY
  8. DIAZEPAM. [Concomitant]
     Active Substance: DIAZEPAM
  9. SIMVASTATIN. [Concomitant]
     Active Substance: SIMVASTATIN
  10. ISOSORBIDE MONONITRATE. [Concomitant]
     Active Substance: ISOSORBIDE MONONITRATE
  11. BECLOMETASON/FORMOTEROL AEROSOL [Concomitant]
     Dosage: 200/6UG 2DF EVERY 12 HOURS
  12. AZELASTINE/FLUTICASON NEUSSPRAY [Concomitant]
     Dosage: 137/50UG 1 DF EVERY 12 HOURS
  13. SALBUTAMOL [Concomitant]
     Active Substance: ALBUTEROL

REACTIONS (5)
  - Swelling face [Recovered/Resolved]
  - Pruritus [Recovered/Resolved]
  - Hypersensitivity [Recovered/Resolved]
  - Sensation of foreign body [Recovered/Resolved]
  - Skin discolouration [Unknown]
